FAERS Safety Report 8917694 (Version 1)
Quarter: 2012Q4

REPORT INFORMATION
  Report Type: 
  Country: US (occurrence: US)
  Receive Date: 20121119
  Receipt Date: 20121119
  Transmission Date: 20130627
  Serious: No
  Sender: FDA-Public Use
  Company Number: US-009507513-1211USA003235

PATIENT
  Sex: Female

DRUGS (1)
  1. CLARITIN REDITABS [Suspect]
     Indication: SNEEZING
     Dosage: UNK, Unknown
     Route: 048
     Dates: start: 20120906

REACTIONS (2)
  - Drug ineffective [Unknown]
  - Expired drug administered [Unknown]
